FAERS Safety Report 11089800 (Version 3)
Quarter: 2016Q3

REPORT INFORMATION
  Report Type: Spontaneous
  Country: US (occurrence: US)
  Receive Date: 20150505
  Receipt Date: 20160829
  Transmission Date: 20161109
  Serious: Yes (Life-Threatening, Hospitalization)
  Sender: FDA-Public Use
  Company Number: US-BAYER-2015-186252

PATIENT
  Age: 33 Year
  Sex: Female

DRUGS (3)
  1. ANUSOL-HC [HYDROCORTISONE ACETATE] [Concomitant]
     Dosage: UNK
  2. MIRENA [Suspect]
     Active Substance: LEVONORGESTREL
     Indication: CONTRACEPTION
     Dosage: 20 MCG/24HR, CONT
     Route: 015
     Dates: start: 20110303, end: 20120807
  3. ALEVE [Concomitant]
     Active Substance: NAPROXEN SODIUM
     Indication: MUSCLE SPASMS

REACTIONS (29)
  - Emotional distress [None]
  - Anhedonia [None]
  - Back pain [None]
  - Libido disorder [None]
  - Arthralgia [None]
  - Fear [None]
  - Pain [None]
  - Sleep disorder [None]
  - Anger [None]
  - Uterine perforation [None]
  - Anxiety [None]
  - Pelvic pain [None]
  - Memory impairment [None]
  - Scar [None]
  - Dry skin [None]
  - Mood swings [None]
  - Madarosis [None]
  - Breast pain [None]
  - Stress [None]
  - General physical health deterioration [None]
  - Weight abnormal [None]
  - Alopecia [None]
  - Hot flush [None]
  - Injury [None]
  - Genital haemorrhage [None]
  - Dyspareunia [None]
  - Abdominal pain lower [None]
  - Fatigue [None]
  - Headache [None]

NARRATIVE: CASE EVENT DATE: 201103
